FAERS Safety Report 9537961 (Version 1)
Quarter: 2013Q3

REPORT INFORMATION
  Report Type: Spontaneous
  Country: GB (occurrence: GB)
  Receive Date: 20130919
  Receipt Date: 20130919
  Transmission Date: 20140515
  Serious: Yes (Congenital Anomaly, Other)
  Sender: FDA-Public Use
  Company Number: GB-WATSON-2013-16198

PATIENT
  Sex: Female

DRUGS (1)
  1. PREDNISONE (UNKNOWN) [Suspect]
     Indication: DERMATITIS CONTACT
     Dosage: UNK
     Route: 064

REACTIONS (3)
  - Velopharyngeal incompetence [Recovering/Resolving]
  - Otitis media chronic [Unknown]
  - Foetal exposure during pregnancy [Unknown]
